FAERS Safety Report 18506833 (Version 1)
Quarter: 2020Q4

REPORT INFORMATION
  Report Type: Report from Study
  Country: PA (occurrence: PA)
  Receive Date: 20201116
  Receipt Date: 20201116
  Transmission Date: 20210114
  Serious: Yes (Life-Threatening, Hospitalization)
  Sender: FDA-Public Use
  Company Number: NVSC2020PA305557

PATIENT
  Age: 84 Year
  Sex: Female

DRUGS (1)
  1. VYMADA [Suspect]
     Active Substance: SACUBITRIL\VALSARTAN
     Indication: PRODUCT USED FOR UNKNOWN INDICATION
     Dosage: 50 MG, BID (PROBABLY TAKES HALF TABLET)
     Route: 065

REACTIONS (4)
  - Cerebrovascular accident [Unknown]
  - Amnesia [Unknown]
  - Wrong technique in product usage process [Unknown]
  - Illness [Unknown]
